FAERS Safety Report 14108324 (Version 4)
Quarter: 2019Q4

REPORT INFORMATION
  Report Type: Spontaneous
  Country: AT (occurrence: AT)
  Receive Date: 20171019
  Receipt Date: 20191217
  Transmission Date: 20200122
  Serious: Yes (Hospitalization, Other)
  Sender: FDA-Public Use
  Company Number: AT-MYLANLABS-2017M1065620

PATIENT
  Age: 67 Year
  Sex: Female

DRUGS (41)
  1. SEROQUEL [Suspect]
     Active Substance: QUETIAPINE FUMARATE
     Dosage: 250 MILLIGRAM
     Route: 048
     Dates: start: 20170619, end: 20170619
  2. LEPONEX [Suspect]
     Active Substance: CLOZAPINE
     Indication: PRODUCT USED FOR UNKNOWN INDICATION
     Dosage: 400 MILLIGRAM
     Route: 048
     Dates: start: 20170614, end: 20170619
  3. SEROQUEL [Suspect]
     Active Substance: QUETIAPINE FUMARATE
     Indication: PRODUCT USED FOR UNKNOWN INDICATION
     Dosage: 400 MILLIGRAM
     Route: 048
     Dates: start: 20170614, end: 20170616
  4. SEROQUEL [Suspect]
     Active Substance: QUETIAPINE FUMARATE
     Dosage: 300 MILLIGRAM
     Route: 048
     Dates: start: 20170617, end: 20170618
  5. ABILIFY [Suspect]
     Active Substance: ARIPIPRAZOLE
     Dosage: 15 MILLIGRAM
     Route: 048
  6. PRAXITEN [Concomitant]
     Active Substance: OXAZEPAM
     Dosage: 150 MILLIGRAM
     Route: 048
     Dates: start: 20170701, end: 20170704
  7. SEROQUEL [Suspect]
     Active Substance: QUETIAPINE FUMARATE
     Dosage: 175 MILLIGRAM
     Route: 048
     Dates: start: 20170620, end: 20170620
  8. PRAXITEN [Concomitant]
     Active Substance: OXAZEPAM
     Dosage: 50 MILLIGRAM
     Route: 048
     Dates: start: 20170626, end: 20170630
  9. RISPERDAL [Concomitant]
     Active Substance: RISPERIDONE
     Dosage: 3 MILLIGRAM
     Dates: start: 20170630, end: 20170630
  10. RISPERDAL [Concomitant]
     Active Substance: RISPERIDONE
     Dosage: 1 MILLIGRAM
     Dates: start: 20170706, end: 20170706
  11. TEMESTA                            /00273201/ [Concomitant]
     Active Substance: LORAZEPAM
     Dosage: 2.5 MILLIGRAM
     Dates: start: 20170720
  12. ABILIFY [Concomitant]
     Active Substance: ARIPIPRAZOLE
     Indication: PRODUCT USED FOR UNKNOWN INDICATION
     Dosage: 5 MILLIGRAM
     Route: 048
     Dates: start: 20170725, end: 20170726
  13. GLUCOPHAGE [Concomitant]
     Active Substance: METFORMIN HYDROCHLORIDE
     Indication: PRODUCT USED FOR UNKNOWN INDICATION
     Dosage: 500 MILLIGRAM
     Route: 048
     Dates: start: 20170614, end: 20170703
  14. LOVENOX [Concomitant]
     Active Substance: ENOXAPARIN SODIUM
     Indication: PRODUCT USED FOR UNKNOWN INDICATION
     Dosage: 40 MILLIGRAM
     Dates: start: 20170621, end: 20170729
  15. RISPERDAL [Concomitant]
     Active Substance: RISPERIDONE
     Indication: PRODUCT USED FOR UNKNOWN INDICATION
     Dosage: 1 MILLIGRAM
     Dates: start: 20170626, end: 20170629
  16. RISPERDAL [Concomitant]
     Active Substance: RISPERIDONE
     Dosage: 4 MILLIGRAM
     Dates: start: 20170701, end: 20170702
  17. TEMESTA                            /00273201/ [Concomitant]
     Active Substance: LORAZEPAM
     Indication: PRODUCT USED FOR UNKNOWN INDICATION
     Dosage: 3 MILLIGRAM
     Dates: start: 20170707, end: 20170719
  18. LAEVOLAC [Concomitant]
     Active Substance: LACTULOSE
     Indication: PRODUCT USED FOR UNKNOWN INDICATION
     Dosage: 2 EL, UNK
     Dates: start: 20170723
  19. LEPONEX [Suspect]
     Active Substance: CLOZAPINE
     Dosage: 300 MILLIGRAM
     Route: 048
     Dates: start: 2017, end: 2017
  20. ABILIFY [Suspect]
     Active Substance: ARIPIPRAZOLE
     Dosage: 10 MILLIGRAM, QD
     Route: 048
     Dates: start: 20170727
  21. PRAXITEN [Concomitant]
     Active Substance: OXAZEPAM
     Dosage: 40 MILLIGRAM
     Route: 048
     Dates: start: 20170619, end: 20170620
  22. NACL [Concomitant]
     Active Substance: SODIUM CHLORIDE
     Indication: PRODUCT USED FOR UNKNOWN INDICATION
     Dosage: 2 DOSAGE FORM
     Route: 048
     Dates: start: 20170614, end: 20170620
  23. MOLAXOLE [Concomitant]
     Active Substance: POLYETHYLENE GLYCOL 3350\POTASSIUM CHLORIDE\SODIUM BICARBONATE\SODIUM CHLORIDE
     Indication: PRODUCT USED FOR UNKNOWN INDICATION
     Dosage: 1 DOSAGE FORM
     Dates: start: 20170614, end: 20170707
  24. PANTOLOC                           /01263204/ [Concomitant]
     Active Substance: PANTOPRAZOLE SODIUM
     Indication: PRODUCT USED FOR UNKNOWN INDICATION
     Dosage: 40 MILLIGRAM
     Route: 048
     Dates: start: 20170614, end: 20170707
  25. SERTRALINE [Suspect]
     Active Substance: SERTRALINE HYDROCHLORIDE
     Indication: PRODUCT USED FOR UNKNOWN INDICATION
     Dosage: 100 MILLIGRAM
     Route: 048
     Dates: start: 20170614, end: 20170619
  26. AKINETON [Suspect]
     Active Substance: BIPERIDEN HYDROCHLORIDE
     Dosage: 4 MILLIGRAM
     Route: 048
     Dates: start: 20170703, end: 20170707
  27. PRAXITEN [Concomitant]
     Active Substance: OXAZEPAM
     Indication: PRODUCT USED FOR UNKNOWN INDICATION
     Dosage: 130 MILLIGRAM
     Route: 048
     Dates: start: 20170614, end: 20170616
  28. PRAXITEN [Concomitant]
     Active Substance: OXAZEPAM
     Dosage: 100 MILLIGRAM
     Route: 048
     Dates: start: 20170621, end: 20170626
  29. ABILIFY [Concomitant]
     Active Substance: ARIPIPRAZOLE
     Dosage: 10 MILLIGRAM
     Route: 048
     Dates: start: 20170727
  30. PRAXITEN [Concomitant]
     Active Substance: OXAZEPAM
     Dosage: 90 MILLIGRAM
     Route: 048
     Dates: start: 20170618, end: 20170618
  31. PRAXITEN [Concomitant]
     Active Substance: OXAZEPAM
     Dosage: 75 MILLIGRAM
     Route: 048
     Dates: start: 20170705, end: 20170706
  32. AMANTADINE SULFATE [Concomitant]
     Active Substance: AMANTADINE SULFATE
     Indication: PRODUCT USED FOR UNKNOWN INDICATION
     Dosage: 200 MILLIGRAM
     Dates: start: 20170708, end: 20170719
  33. LEPONEX [Suspect]
     Active Substance: CLOZAPINE
     Dosage: 350 MILLIGRAM
     Route: 048
     Dates: start: 20170620, end: 20170620
  34. AKINETON [Suspect]
     Active Substance: BIPERIDEN HYDROCHLORIDE
     Indication: PRODUCT USED FOR UNKNOWN INDICATION
     Dosage: 4 MILLIGRAM
     Route: 048
     Dates: start: 20170614, end: 20170622
  35. ABILIFY [Suspect]
     Active Substance: ARIPIPRAZOLE
     Indication: PRODUCT USED FOR UNKNOWN INDICATION
     Dosage: 5 MILLIGRAM, QD
     Route: 048
     Dates: start: 20170725, end: 20170726
  36. ABILIFY [Suspect]
     Active Substance: ARIPIPRAZOLE
     Dosage: 7.5 MILLIGRAM
     Route: 048
  37. PRAXITEN [Concomitant]
     Active Substance: OXAZEPAM
     Dosage: 97.5 MILLIGRAM
     Route: 048
     Dates: start: 20170617, end: 20170617
  38. RISPERDAL [Concomitant]
     Active Substance: RISPERIDONE
     Dosage: 2 MILLIGRAM
     Dates: start: 20170703, end: 20170704
  39. RISPERDAL [Concomitant]
     Active Substance: RISPERIDONE
     Dosage: 1.5 MILLIGRAM
     Dates: start: 20170705, end: 20170705
  40. SELEXID                            /00445301/ [Concomitant]
     Active Substance: PIVMECILLINAM HYDROCHLORIDE
     Indication: PRODUCT USED FOR UNKNOWN INDICATION
     Dosage: 400 MILLIGRAM
     Dates: start: 20170627, end: 20170630
  41. ABILIFY [Concomitant]
     Active Substance: ARIPIPRAZOLE
     Dosage: 3 MILLIGRAM
     Route: 048

REACTIONS (17)
  - Psychotic disorder [Unknown]
  - C-reactive protein increased [Recovered/Resolved]
  - Wrong technique in product usage process [Unknown]
  - Pyrexia [Unknown]
  - Blood creatine phosphokinase increased [Recovering/Resolving]
  - Neuroleptic malignant syndrome [Recovered/Resolved]
  - Catatonia [Unknown]
  - Blood pressure increased [Recovered/Resolved]
  - Delirium [Recovered/Resolved]
  - Blood cholesterol increased [Recovering/Resolving]
  - Extrapyramidal disorder [Recovered/Resolved]
  - Antipsychotic drug level increased [Unknown]
  - Salivary hypersecretion [Unknown]
  - Blood triglycerides increased [Unknown]
  - Neutrophil percentage increased [Recovered/Resolved]
  - Underdose [Unknown]
  - Heart rate increased [Recovered/Resolved]

NARRATIVE: CASE EVENT DATE: 20170614
